FAERS Safety Report 20359327 (Version 1)
Quarter: 2022Q1

REPORT INFORMATION
  Report Type: Spontaneous
  Country: US (occurrence: US)
  Receive Date: 20220121
  Receipt Date: 20220121
  Transmission Date: 20220423
  Serious: No
  Sender: FDA-Public Use
  Company Number: US-SA-SAC20220118000792

PATIENT
  Age: 63 Year
  Sex: Male

DRUGS (1)
  1. DUPIXENT [Suspect]
     Active Substance: DUPILUMAB
     Indication: Dermatitis atopic
     Dosage: 300 MG, QOW; DOSE - 300MG/2ML STRENGTH- 300 MG /2 ML FREQUENCY- INJ 300MG 1P SQ Q 2 WS
     Route: 058
     Dates: start: 202110

REACTIONS (1)
  - Drug ineffective [Unknown]
